FAERS Safety Report 5487692-3 (Version None)
Quarter: 2007Q4

REPORT INFORMATION
  Report Type: 
  Country: None (occurrence: None)
  Receive Date: 20071017
  Receipt Date: 20071015
  Transmission Date: 20080405
  Serious: Yes (Death, Other)
  Sender: FDA-Public Use
  Company Number: PHRM2007FR02102

PATIENT
  Age: 29 Year
  Sex: Female
  Weight: 135 kg

DRUGS (6)
  1. LEPONEX [Suspect]
     Indication: SCHIZOPHRENIA
     Dosage: 25 MG/DAY
     Route: 048
     Dates: start: 20070623, end: 20070628
  2. LEPONEX [Suspect]
     Dosage: 50 MG/DAY
     Route: 048
     Dates: start: 20070629
  3. TERCIAN [Suspect]
     Indication: ANXIETY
     Dosage: 300 MG/DAY
     Route: 048
     Dates: start: 20070621
  4. THERALENE [Suspect]
     Indication: INSOMNIA
     Dosage: 30 DROPS/DAY
     Route: 048
     Dates: start: 20070623
  5. IMOVANE [Concomitant]
     Indication: INSOMNIA
     Route: 048
     Dates: start: 20070621
  6. TRANXENE [Suspect]
     Indication: INSOMNIA
     Dosage: 7.5 MG, QD
     Route: 048

REACTIONS (4)
  - ANTIPSYCHOTIC DRUG LEVEL ABOVE THERAPEUTIC [None]
  - DEATH [None]
  - DRUG INTERACTION [None]
  - TACHYCARDIA [None]
